FAERS Safety Report 13572290 (Version 2)
Quarter: 2017Q2

REPORT INFORMATION
  Report Type: Spontaneous
  Country: BR (occurrence: BR)
  Receive Date: 20170523
  Receipt Date: 20170530
  Transmission Date: 20170830
  Serious: Yes (Life-Threatening, Hospitalization, Other)
  Sender: FDA-Public Use
  Company Number: BR-ASTRAZENECA-2017SE52720

PATIENT
  Age: 63 Year

DRUGS (4)
  1. AMIODARONE [Concomitant]
     Active Substance: AMIODARONE
  2. ROSUVASTATIN. [Suspect]
     Active Substance: ROSUVASTATIN
     Dosage: UNKNOWN DOSE
     Route: 048
  3. ASPIRIN. [Concomitant]
     Active Substance: ASPIRIN
  4. TICAGRELOR [Suspect]
     Active Substance: TICAGRELOR
     Dosage: UNKNOWN DOSE
     Route: 048
     Dates: end: 201705

REACTIONS (8)
  - Acute myocardial infarction [Unknown]
  - Cardio-respiratory arrest [Recovered/Resolved]
  - Atrial fibrillation [Unknown]
  - Oedema peripheral [Unknown]
  - Orthopnoea [Unknown]
  - Syncope [Unknown]
  - Dyspnoea exertional [Recovered/Resolved]
  - Tachyarrhythmia [Unknown]

NARRATIVE: CASE EVENT DATE: 201705
